FAERS Safety Report 8033174 (Version 2)
Quarter: 2013Q2

REPORT INFORMATION
  Report Type: Report from Study
  Country: FI (occurrence: FI)
  Receive Date: 20110713
  Receipt Date: 20130418
  Transmission Date: 20140414
  Serious: Yes (Other)
  Sender: FDA-Public Use
  Company Number: FI-ROCHE-787082

PATIENT
  Sex: Female

DRUGS (5)
  1. PYRIMETHAMINE/SULFADOXINE [Suspect]
     Indication: MALARIA
     Dosage: FREQUENCY: 3 TABLETS TWICE DURING PREGNANCY.
     Route: 065
  2. PLACEBO [Suspect]
     Indication: PRODUCT USED FOR UNKNOWN INDICATION
     Dosage: FREQUENCY: TWICE DURING PREGNANCY
     Route: 065
  3. AZITHROMYCIN [Suspect]
     Indication: GENITAL INFECTION
     Dosage: FREQUENCY: 2 TABLETS TWICE DURING PREGNANCY
     Route: 048
  4. FERROUS SULPHATE [Concomitant]
  5. FOLIC ACID [Concomitant]

REACTIONS (2)
  - Exposure during pregnancy [Unknown]
  - Abortion [Unknown]
